FAERS Safety Report 4284372-7 (Version None)
Quarter: 2004Q1

REPORT INFORMATION
  Report Type: 
  Country: None (occurrence: None)
  Receive Date: 20040130
  Receipt Date: 20040119
  Transmission Date: 20041129
  Serious: Yes (Other)
  Sender: FDA-Public Use
  Company Number: HQWYE516221JAN04

PATIENT
  Age: 61 Year
  Sex: Male

DRUGS (1)
  1. MYLOTARG [Suspect]
     Indication: ACUTE MYELOID LEUKAEMIA
     Dosage: 9 MG/M2, INTRAVENOUS
     Route: 042

REACTIONS (1)
  - VENOOCCLUSIVE LIVER DISEASE [None]
